FAERS Safety Report 5794421-2 (Version None)
Quarter: 2008Q2

REPORT INFORMATION
  Report Type: 
  Country: None (occurrence: None)
  Receive Date: 20080625
  Receipt Date: 20080610
  Transmission Date: 20081010
  Serious: Yes (Other)
  Sender: FDA-Public Use
  Company Number: S08-GER-02162-01

PATIENT
  Age: 34 Year
  Sex: Female

DRUGS (1)
  1. ESCITALOPRAM OXALATE [Suspect]

REACTIONS (2)
  - OSTEOPOROSIS [None]
  - RIB FRACTURE [None]
